FAERS Safety Report 21035719 (Version 2)
Quarter: 2022Q3

REPORT INFORMATION
  Report Type: Spontaneous
  Country: US (occurrence: US)
  Receive Date: 20220701
  Receipt Date: 20220911
  Transmission Date: 20221027
  Serious: No
  Sender: FDA-Public Use
  Company Number: US-SANOFI-01156053

PATIENT
  Age: 67 Year
  Sex: Male

DRUGS (3)
  1. LANTUS [Suspect]
     Active Substance: INSULIN GLARGINE
     Indication: Type 2 diabetes mellitus
     Dosage: 35 IU, BID
     Route: 058
  2. PREDNISONE [Suspect]
     Active Substance: PREDNISONE
  3. METFORMIN [Suspect]
     Active Substance: METFORMIN HYDROCHLORIDE

REACTIONS (7)
  - Sleep disorder [Unknown]
  - Renal disorder [Unknown]
  - Inappropriate schedule of product administration [Unknown]
  - Blood glucose increased [Unknown]
  - Blood glucose abnormal [Unknown]
  - Incorrect dose administered by device [Unknown]
  - Device delivery system issue [Unknown]
